FAERS Safety Report 7086641-4 (Version None)
Quarter: 2010Q4

REPORT INFORMATION
  Report Type: 
  Country: None (occurrence: None)
  Receive Date: 20101105
  Receipt Date: 20101020
  Transmission Date: 20110411
  Serious: No
  Sender: FDA-Public Use
  Company Number: US-BAYER-201038354NA

PATIENT
  Age: 63 Year
  Sex: Male
  Weight: 118 kg

DRUGS (5)
  1. ULTRAVIST (PHARMACY BULK) [Suspect]
     Indication: COMPUTERISED TOMOGRAM THORAX
     Dosage: TOTAL DAILY DOSE: 80 ML  UNIT DOSE: 500 ML
     Route: 042
     Dates: start: 20101019, end: 20101019
  2. PREDNISONE [Concomitant]
     Indication: PREMEDICATION
     Dosage: TOTAL DAILY DOSE: 100 MG
     Dates: start: 20101018, end: 20101018
  3. PREDNISONE [Concomitant]
     Dosage: AS USED: 50 MG
     Dates: start: 20101019, end: 20101019
  4. BENADRYL [Concomitant]
     Indication: PREMEDICATION
     Dosage: AS USED: 50 MG
     Dates: start: 20101019, end: 20101019
  5. ZANTAC [Concomitant]
     Indication: PREMEDICATION
     Dosage: 1 HOUR PRIOR TO SCAN
     Dates: start: 20101019, end: 20101019

REACTIONS (1)
  - PRURITUS [None]
